FAERS Safety Report 18323847 (Version 14)
Quarter: 2023Q2

REPORT INFORMATION
  Report Type: Spontaneous
  Country: US (occurrence: US)
  Receive Date: 20200929
  Receipt Date: 20230522
  Transmission Date: 20230722
  Serious: Yes (Other)
  Sender: FDA-Public Use
  Company Number: US-PFIZER INC-2017083188

PATIENT
  Age: 65 Year
  Sex: Female
  Weight: 61 kg

DRUGS (1)
  1. SOMAVERT [Suspect]
     Active Substance: PEGVISOMANT
     Indication: Acromegaly
     Dosage: 15 MG, DAILY (7 TIMES A WEEK)
     Route: 058
     Dates: start: 20160713

REACTIONS (6)
  - Brain injury [Unknown]
  - Malaise [Unknown]
  - Hypercalcaemia [Unknown]
  - Illness [Unknown]
  - Liquid product physical issue [Unknown]
  - Poor quality product administered [Unknown]
